FAERS Safety Report 5333526-7 (Version None)
Quarter: 2007Q1

REPORT INFORMATION
  Report Type: 
  Country: None (occurrence: None)
  Receive Date: 20070308
  Receipt Date: 20061109
  Transmission Date: 20070707
  Serious: No
  Sender: FDA-Public Use
  Company Number: 2006-BP-13105BP

PATIENT
  Sex: Female

DRUGS (5)
  1. SPIRIVA [Suspect]
     Indication: CHRONIC OBSTRUCTIVE PULMONARY DISEASE
     Dosage: 18 MCG (18 MCG), IH
     Route: 055
     Dates: start: 20060901, end: 20060926
  2. ALBUTEROL [Concomitant]
  3. PROTONIX [Concomitant]
  4. FLOVENT [Concomitant]
  5. CELEBREX [Concomitant]

REACTIONS (2)
  - DRUG INEFFECTIVE [None]
  - FUNGAL INFECTION [None]
